FAERS Safety Report 7974159-3 (Version None)
Quarter: 2011Q4

REPORT INFORMATION
  Report Type: 
  Country: None (occurrence: None)
  Receive Date: 20111213
  Receipt Date: 20111212
  Transmission Date: 20120403
  Serious: Yes (Other)
  Sender: FDA-Public Use
  Company Number: US-GLAXOSMITHKLINE-A0949234A

PATIENT
  Age: 57 Year
  Sex: Female

DRUGS (4)
  1. NICORETTE [Suspect]
     Indication: SMOKING CESSATION THERAPY
     Route: 002
     Dates: start: 20111001
  2. PRO BIOTIC ACIDOPHILUS [Concomitant]
  3. NAPROXEN (ALEVE) [Concomitant]
     Route: 048
  4. VITAMIN D [Concomitant]

REACTIONS (6)
  - MALAISE [None]
  - ABDOMINAL DISTENSION [None]
  - ACCIDENTAL EXPOSURE [None]
  - HAEMATOCHEZIA [None]
  - DEFAECATION URGENCY [None]
  - DIARRHOEA [None]
